FAERS Safety Report 9999258 (Version 1)
Quarter: 2014Q1

REPORT INFORMATION
  Report Type: Spontaneous
  Country: US (occurrence: None)
  Receive Date: 20140311
  Receipt Date: 20140311
  Transmission Date: 20141002
  Serious: Yes (Other)
  Sender: FDA-Public Use
  Company Number: None

PATIENT
  Age: 46 Year
  Sex: Male
  Weight: 90.72 kg

DRUGS (1)
  1. EFFIENT [Suspect]
     Indication: COAGULOPATHY
     Dosage: 1 PILL  ONCE DAILY TAKEN BY MOUTH
     Route: 048
     Dates: start: 20140126, end: 20140203

REACTIONS (4)
  - Headache [None]
  - Dizziness postural [None]
  - Fatigue [None]
  - Asthenia [None]
